FAERS Safety Report 24973738 (Version 5)
Quarter: 2025Q2

REPORT INFORMATION
  Report Type: Spontaneous
  Country: JP (occurrence: JP)
  Receive Date: 20250217
  Receipt Date: 20250410
  Transmission Date: 20250717
  Serious: Yes (Death, Other)
  Sender: GENMAB
  Company Number: JP-GENMAB-2025-00285

PATIENT
  Sex: Female

DRUGS (13)
  1. EPKINLY [Suspect]
     Active Substance: EPCORITAMAB-BYSP
     Indication: Diffuse large B-cell lymphoma refractory
     Route: 058
     Dates: start: 20250123, end: 20250123
  2. EPKINLY [Suspect]
     Active Substance: EPCORITAMAB-BYSP
     Route: 058
     Dates: start: 20250130, end: 20250130
  3. DEXAMETHASONE SODIUM PHOSPHATE [Suspect]
     Active Substance: DEXAMETHASONE SODIUM PHOSPHATE
     Indication: Prophylaxis
     Dates: start: 20250123, end: 20250202
  4. DEXAMETHASONE SODIUM PHOSPHATE [Suspect]
     Active Substance: DEXAMETHASONE SODIUM PHOSPHATE
     Indication: Immune effector cell-associated neurotoxicity syndrome
     Route: 042
     Dates: start: 20250204, end: 20250205
  5. DEXAMETHASONE SODIUM PHOSPHATE [Suspect]
     Active Substance: DEXAMETHASONE SODIUM PHOSPHATE
     Route: 042
     Dates: start: 20250206, end: 20250207
  6. DEXAMETHASONE SODIUM PHOSPHATE [Suspect]
     Active Substance: DEXAMETHASONE SODIUM PHOSPHATE
     Route: 042
     Dates: start: 20250213, end: 20250216
  7. DEXAMETHASONE SODIUM PHOSPHATE [Suspect]
     Active Substance: DEXAMETHASONE SODIUM PHOSPHATE
     Route: 042
     Dates: start: 20250217, end: 20250223
  8. SOLU-MEDROL [Suspect]
     Active Substance: METHYLPREDNISOLONE SODIUM SUCCINATE
     Indication: Immune effector cell-associated neurotoxicity syndrome
     Dates: start: 20250208, end: 20250210
  9. SOLU-MEDROL [Suspect]
     Active Substance: METHYLPREDNISOLONE SODIUM SUCCINATE
     Dates: start: 20250211, end: 20250212
  10. CHLORPHENIRAMINE MALEATE [Concomitant]
     Active Substance: CHLORPHENIRAMINE MALEATE
     Indication: Prophylaxis
     Dates: start: 20250123, end: 20250130
  11. POLARAMINE [Concomitant]
     Active Substance: DEXCHLORPHENIRAMINE MALEATE
     Indication: Prophylaxis
     Dates: start: 20250123, end: 20250130
  12. CALONAL [Concomitant]
     Active Substance: ACETAMINOPHEN
     Indication: Prophylaxis
     Dates: start: 20250123, end: 20250130
  13. LEVOTHYROXINE [Concomitant]
     Active Substance: LEVOTHYROXINE

REACTIONS (7)
  - Immune effector cell-associated neurotoxicity syndrome [Fatal]
  - CSF protein increased [Unknown]
  - Systemic mycosis [Unknown]
  - Neuropathy peripheral [Unknown]
  - Blood lactate dehydrogenase increased [Unknown]
  - Blood glucose increased [Unknown]
  - Cytomegalovirus test positive [Unknown]

NARRATIVE: CASE EVENT DATE: 20250101
